FAERS Safety Report 8605114-8 (Version None)
Quarter: 2012Q3

REPORT INFORMATION
  Report Type: 
  Country: None (occurrence: None)
  Receive Date: 20120820
  Receipt Date: 20120813
  Transmission Date: 20120928
  Serious: No
  Sender: FDA-Public Use
  Company Number: US-B.I. PHARMACEUTICALS,INC./RIDGEFIELD-2012-BP-19083BP

PATIENT
  Sex: Female

DRUGS (8)
  1. CENTRUM SILVER FOR WOMEN [Concomitant]
     Indication: SUPPLEMENTATION THERAPY
     Dates: start: 20110101
  2. AGGRENOX [Suspect]
     Indication: CEREBROVASCULAR ACCIDENT PROPHYLAXIS
     Route: 048
     Dates: start: 20120808, end: 20120808
  3. OMEPRAZOLE [Concomitant]
     Indication: GASTROOESOPHAGEAL REFLUX DISEASE
     Dates: start: 20110101
  4. CITALOPRAM HYDROBROMIDE [Concomitant]
     Indication: ANXIETY
     Dates: start: 20120101
  5. VITAMIN D [Concomitant]
     Indication: SUPPLEMENTATION THERAPY
     Dates: start: 20120701
  6. HYDROCHLOROTHIAZIDE [Concomitant]
     Dates: start: 20110101
  7. NORVASC [Concomitant]
     Indication: HYPERTENSION
     Dosage: 2.5 MG
     Route: 048
     Dates: start: 20120101
  8. THERACRAN [Concomitant]
     Indication: PROPHYLAXIS
     Dates: start: 20110101

REACTIONS (4)
  - RESTLESSNESS [None]
  - HEADACHE [None]
  - PAIN IN EXTREMITY [None]
  - PARAESTHESIA [None]
